FAERS Safety Report 6019761-3 (Version None)
Quarter: 2008Q4

REPORT INFORMATION
  Report Type: 
  Country: None (occurrence: None)
  Receive Date: 20081224
  Receipt Date: 20081218
  Transmission Date: 20090506
  Serious: Yes (Other)
  Sender: FDA-Public Use
  Company Number: US-GENENTECH-273952

PATIENT
  Sex: Male
  Weight: 99.773 kg

DRUGS (3)
  1. RITUXAN [Suspect]
     Indication: NON-HODGKIN'S LYMPHOMA
     Dosage: 900 MG, Q3W
     Route: 042
     Dates: start: 20000912
  2. RITUXAN [Suspect]
     Indication: LYMPHOCYTIC LEUKAEMIA
  3. RITUXAN [Suspect]
     Indication: CHRONIC LYMPHOCYTIC LEUKAEMIA

REACTIONS (1)
  - HEPATITIS B [None]
